FAERS Safety Report 4533558-2 (Version None)
Quarter: 2004Q4

REPORT INFORMATION
  Report Type: 
  Country: None (occurrence: None)
  Receive Date: 20041206
  Receipt Date: 20041001
  Transmission Date: 20050328
  Serious: No
  Sender: FDA-Public Use
  Company Number: USA041079925

PATIENT
  Sex: Female
  Weight: 71 kg

DRUGS (1)
  1. CYMBALTA [Suspect]
     Indication: DEPRESSION
     Dosage: 30 MG/ 1 DAY
     Dates: start: 20040930

REACTIONS (2)
  - HEART RATE INCREASED [None]
  - INSOMNIA [None]
